FAERS Safety Report 5249488-7 (Version None)
Quarter: 2007Q1

REPORT INFORMATION
  Report Type: 
  Country: None (occurrence: None)
  Receive Date: 20070228
  Receipt Date: 20061204
  Transmission Date: 20070707
  Serious: No
  Sender: FDA-Public Use
  Company Number: S2006US21138

PATIENT
  Sex: Male

DRUGS (1)
  1. VALTREX [Suspect]
     Route: 048

REACTIONS (4)
  - PARAESTHESIA [None]
  - PRURITUS [None]
  - RASH [None]
  - THERAPEUTIC RESPONSE DECREASED [None]
